FAERS Safety Report 9167499 (Version 1)
Quarter: 2013Q1

REPORT INFORMATION
  Report Type: Spontaneous
  Country: GB (occurrence: None)
  Receive Date: 20130304
  Receipt Date: 20130304
  Transmission Date: 20140127
  Serious: Yes (Hospitalization)
  Sender: FDA-Public Use
  Company Number: IPC201302-000053

PATIENT
  Sex: Female

DRUGS (1)
  1. ALLOPURINOL [Suspect]
     Indication: GOUT
     Dosage: -STOPPED

REACTIONS (7)
  - Hepatomegaly [None]
  - Nausea [None]
  - Normochromic normocytic anaemia [None]
  - Abdominal distension [None]
  - Cholelithiasis [None]
  - Granuloma [None]
  - Abdominal distension [None]
